FAERS Safety Report 5792547-0 (Version None)
Quarter: 2008Q2

REPORT INFORMATION
  Report Type: 
  Country: None (occurrence: None)
  Receive Date: 20080624
  Receipt Date: 20080609
  Transmission Date: 20081010
  Serious: Yes (Hospitalization)
  Sender: FDA-Public Use
  Company Number: 2008S1009997

PATIENT
  Age: 37 Year
  Sex: Female

DRUGS (2)
  1. FUROSEMIDE [Suspect]
     Indication: ASCITES
     Dosage: 40 MG; ORAL
     Route: 048
  2. SPIRONOLACTONE [Suspect]
     Indication: ASCITES
     Dosage: 25 MG; DAILY; ORAL
     Route: 048

REACTIONS (2)
  - LIVER DISORDER [None]
  - RASH GENERALISED [None]
